FAERS Safety Report 4671058-X (Version None)
Quarter: 2005Q2

REPORT INFORMATION
  Report Type: 
  Country: None (occurrence: None)
  Receive Date: 20050523
  Receipt Date: 20050512
  Transmission Date: 20051028
  Serious: Yes (Other)
  Sender: FDA-Public Use
  Company Number: 2005SI000154

PATIENT
  Age: 45 Year
  Sex: Male

DRUGS (1)
  1. ACITRETIN (ACITRETIN) (25 MG) [Suspect]
     Indication: PSORIASIS
     Dosage: 25 MG QD PO
     Route: 048
     Dates: end: 20050501

REACTIONS (1)
  - DEEP VEIN THROMBOSIS [None]
